FAERS Safety Report 10149062 (Version 3)
Quarter: 2014Q2

REPORT INFORMATION
  Report Type: Spontaneous
  Country: JP (occurrence: JP)
  Receive Date: 20140502
  Receipt Date: 20140516
  Transmission Date: 20141212
  Serious: Yes (Life-Threatening, Hospitalization, Other)
  Sender: FDA-Public Use
  Company Number: JP-ROCHE-1363339

PATIENT
  Age: 60 Year
  Sex: Male
  Weight: 55 kg

DRUGS (5)
  1. AVASTIN [Suspect]
     Indication: COLON CANCER
     Dosage: TREATMENT LINE: 1STLINE?COMPLETED TREATMENT CYCLE NUMBER: 6
     Route: 041
     Dates: start: 20130218, end: 20130624
  2. XELODA [Suspect]
     Indication: COLON CANCER
     Dosage: 14 TIMES/THREE WEEKS?COMPLETED TREATMENT CYCLE NUMBER: 6
     Route: 048
     Dates: start: 20130218, end: 20130624
  3. ELPLAT [Concomitant]
     Indication: COLON CANCER
     Dosage: COMPLETED TREATMENT CYCLE NUMBER: 6
     Route: 041
     Dates: start: 20130218, end: 20130624
  4. ALOXI [Concomitant]
     Indication: PROPHYLAXIS OF NAUSEA AND VOMITING
     Route: 041
     Dates: start: 20130218, end: 20130624
  5. DECADRON [Concomitant]
     Indication: PROPHYLAXIS OF NAUSEA AND VOMITING
     Route: 041
     Dates: start: 20130218, end: 20130624

REACTIONS (3)
  - Gastrointestinal perforation [Recovering/Resolving]
  - Peritonitis [Unknown]
  - Duodenal ulcer [Unknown]
